FAERS Safety Report 4633161-X (Version None)
Quarter: 2005Q2

REPORT INFORMATION
  Report Type: 
  Country: None (occurrence: None)
  Receive Date: 20050412
  Receipt Date: 20050210
  Transmission Date: 20051028
  Serious: Yes (Hospitalization, Other)
  Sender: FDA-Public Use
  Company Number: US-BRISTOL-MYERS SQUIBB COMPANY-12858858

PATIENT
  Sex: Male
  Weight: 98 kg

DRUGS (4)
  1. COUMADIN [Suspect]
     Indication: HEART RATE IRREGULAR
     Route: 048
     Dates: start: 20040601
  2. COUMADIN [Suspect]
     Indication: ATRIAL FIBRILLATION
     Route: 048
     Dates: start: 20040601
  3. ZOCOR [Concomitant]
  4. HYZAAR [Concomitant]

REACTIONS (3)
  - AMNESIA [None]
  - BLINDNESS [None]
  - CEREBROVASCULAR ACCIDENT [None]
